FAERS Safety Report 10329165 (Version 8)
Quarter: 2020Q3

REPORT INFORMATION
  Report Type: Spontaneous
  Country: AU (occurrence: AU)
  Receive Date: 20140721
  Receipt Date: 20200924
  Transmission Date: 20201102
  Serious: Yes (Hospitalization, Other)
  Sender: FDA-Public Use
  Company Number: PHHY2014AU086707

PATIENT
  Age: 68 Year
  Sex: Male

DRUGS (19)
  1. OCTREOTIDE. [Suspect]
     Active Substance: OCTREOTIDE
     Indication: PANCREATIC NEUROENDOCRINE TUMOUR
     Dosage: 300 UG/HR, UNK
     Route: 065
  2. LANREOTIDE [Suspect]
     Active Substance: LANREOTIDE
     Indication: PRODUCT USED FOR UNKNOWN INDICATION
     Dosage: UNK
     Route: 065
  3. DEXAMETASON [Concomitant]
     Active Substance: DEXAMETHASONE
     Indication: PRODUCT USED FOR UNKNOWN INDICATION
     Dosage: UNK
     Route: 065
     Dates: start: 20140703
  4. LUTETIUM (177LU) CHLORIDE [Suspect]
     Active Substance: LUTETIUM CHLORIDE LU-177
     Indication: PRODUCT USED FOR UNKNOWN INDICATION
     Dosage: 4.95 GBQ, UNK
     Route: 065
     Dates: start: 20141002
  5. PHENOXYBENZAMINE [Concomitant]
     Active Substance: PHENOXYBENZAMINE
     Indication: PRODUCT USED FOR UNKNOWN INDICATION
     Dosage: UNK
     Route: 065
     Dates: start: 20140703
  6. LUTETIUM (177LU) CHLORIDE [Suspect]
     Active Substance: LUTETIUM CHLORIDE LU-177
     Dosage: 7.4 GBQ, UNK
     Route: 065
     Dates: start: 201501
  7. PANTOPRAZOLE [Concomitant]
     Active Substance: PANTOPRAZOLE
     Indication: PRODUCT USED FOR UNKNOWN INDICATION
     Dosage: UNK
     Route: 065
     Dates: start: 20140701
  8. ATORVASTATIN [Concomitant]
     Active Substance: ATORVASTATIN
     Indication: PRODUCT USED FOR UNKNOWN INDICATION
     Route: 065
  9. HEPARIN [Concomitant]
     Active Substance: HEPARIN SODIUM
     Indication: PRODUCT USED FOR UNKNOWN INDICATION
     Dosage: UNK
     Route: 065
     Dates: start: 20140628
  10. OCTREOTIDE. [Suspect]
     Active Substance: OCTREOTIDE
     Indication: METASTATIC CARCINOID TUMOUR
     Dosage: 500 UG/HR UNK
     Route: 058
     Dates: start: 201405
  11. OCTREOTIDE. [Suspect]
     Active Substance: OCTREOTIDE
     Dosage: 100 UG, BID
     Route: 058
     Dates: start: 201409
  12. ASPIRIN. [Concomitant]
     Active Substance: ASPIRIN
     Indication: PRODUCT USED FOR UNKNOWN INDICATION
     Dosage: 100 MG, UNK
     Route: 065
  13. RANITIDINE. [Concomitant]
     Active Substance: RANITIDINE
     Indication: PRODUCT USED FOR UNKNOWN INDICATION
     Route: 065
     Dates: start: 20140703
  14. SANDOSTATIN LAR DEPOT [Suspect]
     Active Substance: OCTREOTIDE ACETATE
     Indication: METASTATIC CARCINOID TUMOUR
     Dosage: 30 MG, QMO
     Route: 030
     Dates: start: 201406, end: 201407
  15. LUTETIUM (177LU) CHLORIDE [Suspect]
     Active Substance: LUTETIUM CHLORIDE LU-177
     Dosage: 7.4 GBQ, UNK
     Route: 065
     Dates: start: 201411
  16. DILTIAZEM. [Concomitant]
     Active Substance: DILTIAZEM
     Indication: PRODUCT USED FOR UNKNOWN INDICATION
     Dosage: UNK
     Route: 065
     Dates: start: 20140708
  17. SANDOSTATIN LAR DEPOT [Suspect]
     Active Substance: OCTREOTIDE ACETATE
     Indication: PANCREATIC NEUROENDOCRINE TUMOUR
     Dosage: 30 MG, QMO
     Route: 030
     Dates: start: 201405
  18. SANDOSTATIN LAR DEPOT [Suspect]
     Active Substance: OCTREOTIDE ACETATE
     Dosage: 30 MG, QMO
     Route: 030
  19. CYPROHEPTADINE. [Concomitant]
     Active Substance: CYPROHEPTADINE
     Indication: PRODUCT USED FOR UNKNOWN INDICATION
     Dosage: UNK
     Route: 065
     Dates: start: 20140703

REACTIONS (18)
  - Haemodynamic instability [Unknown]
  - Malignant neoplasm progression [Unknown]
  - Ischaemia [Unknown]
  - Product administration error [Unknown]
  - Cardiac arrest [Unknown]
  - Therapeutic response decreased [Not Recovered/Not Resolved]
  - Loss of consciousness [Unknown]
  - Circulatory collapse [Not Recovered/Not Resolved]
  - Electrocardiogram QT prolonged [Recovering/Resolving]
  - Acute myocardial infarction [Unknown]
  - Carcinoid crisis [Unknown]
  - Coronary artery disease [Unknown]
  - Dizziness [Not Recovered/Not Resolved]
  - Metastases to liver [Unknown]
  - Angina pectoris [Unknown]
  - Flushing [Not Recovered/Not Resolved]
  - Hypertension [Unknown]
  - Diarrhoea [Unknown]

NARRATIVE: CASE EVENT DATE: 201406
